FAERS Safety Report 18745609 (Version 1)
Quarter: 2021Q1

REPORT INFORMATION
  Report Type: Other
  Country: KR (occurrence: KR)
  Receive Date: 20210115
  Receipt Date: 20210115
  Transmission Date: 20210419
  Serious: Yes (Other)
  Sender: FDA-Public Use
  Company Number: KR-ROCHE-2747839

PATIENT

DRUGS (3)
  1. SIROLIMUS. [Suspect]
     Active Substance: SIROLIMUS
     Indication: PROPHYLAXIS AGAINST TRANSPLANT REJECTION
     Route: 065
  2. MYCOPHENOLATE MOFETIL. [Suspect]
     Active Substance: MYCOPHENOLATE MOFETIL
     Indication: PROPHYLAXIS AGAINST TRANSPLANT REJECTION
     Route: 065
  3. TACROLIMUS. [Suspect]
     Active Substance: TACROLIMUS
     Indication: PROPHYLAXIS AGAINST TRANSPLANT REJECTION
     Route: 065

REACTIONS (60)
  - Stomatitis [Unknown]
  - Libido decreased [Unknown]
  - Decreased appetite [Unknown]
  - Headache [Unknown]
  - Dizziness [Unknown]
  - Hyperhidrosis [Unknown]
  - Anogenital warts [Unknown]
  - Taste disorder [Unknown]
  - Gastric disorder [Unknown]
  - Ill-defined disorder [Unknown]
  - Depression [Unknown]
  - Flatulence [Unknown]
  - Lymphadenopathy [Unknown]
  - Constipation [Unknown]
  - Dyspnoea [Unknown]
  - Palpitations [Unknown]
  - Breast enlargement [Unknown]
  - Micturition urgency [Unknown]
  - Asthenia [Unknown]
  - Insomnia [Unknown]
  - Cushingoid [Unknown]
  - Joint swelling [Unknown]
  - Back pain [Unknown]
  - Rash [Unknown]
  - Muscle spasms [Unknown]
  - Contusion [Unknown]
  - Photosensitivity reaction [Unknown]
  - Skin papilloma [Unknown]
  - Visual impairment [Unknown]
  - Muscular weakness [Unknown]
  - Lipohypertrophy [Unknown]
  - Dry skin [Unknown]
  - Onychoclasis [Unknown]
  - Arthralgia [Unknown]
  - Mood swings [Unknown]
  - Nightmare [Unknown]
  - Increased appetite [Unknown]
  - Deafness [Unknown]
  - Erythema [Unknown]
  - Thirst [Unknown]
  - Fatigue [Unknown]
  - Alopecia [Unknown]
  - Cheilitis [Unknown]
  - Hypoaesthesia [Unknown]
  - Anxiety [Unknown]
  - Skin discolouration [Unknown]
  - Tremor [Unknown]
  - Nervousness [Unknown]
  - Gingival swelling [Unknown]
  - Disturbance in attention [Unknown]
  - Feeling hot [Unknown]
  - Skin fragility [Unknown]
  - Seborrhoea [Unknown]
  - Hair growth abnormal [Unknown]
  - Chest pain [Unknown]
  - Erectile dysfunction [Unknown]
  - Menstrual disorder [Unknown]
  - Pruritus [Unknown]
  - Diarrhoea [Unknown]
  - Dysphonia [Unknown]
